FAERS Safety Report 4998628-3 (Version None)
Quarter: 2006Q2

REPORT INFORMATION
  Report Type: 
  Country: None (occurrence: None)
  Receive Date: 20060509
  Receipt Date: 20060427
  Transmission Date: 20061013
  Serious: Yes (Death, Hospitalization)
  Sender: FDA-Public Use
  Company Number: GXKR2006GL02421

PATIENT
  Age: 66 Year
  Sex: Female
  Weight: 55 kg

DRUGS (5)
  1. RIMACTANE [Suspect]
     Indication: TUBERCULOSIS
     Dosage: 2 GM, ORAL
     Route: 048
     Dates: start: 20051221, end: 20060307
  2. ISONIAZID 'OBA' (ISONIAZID) [Suspect]
     Indication: TUBERCULOSIS
     Dosage: 300 MG, ORAL
     Route: 048
     Dates: start: 20051221, end: 20060307
  3. MYAMBUTOL [Concomitant]
  4. PRIMPERAN TAB [Concomitant]
  5. PYRAZINAMIDE [Concomitant]

REACTIONS (3)
  - COMA HEPATIC [None]
  - HEPATIC CIRRHOSIS [None]
  - NAUSEA [None]
